FAERS Safety Report 9399875 (Version 2)
Quarter: 2013Q3

REPORT INFORMATION
  Report Type: Spontaneous
  Country: IT (occurrence: IT)
  Receive Date: 20130715
  Receipt Date: 20130910
  Transmission Date: 20140515
  Serious: Yes (Hospitalization)
  Sender: FDA-Public Use
  Company Number: IT-JNJFOC-20130707267

PATIENT
  Age: 56 Year
  Sex: Male

DRUGS (2)
  1. PALEXIA COMPRESSE A RILASCIO PROLUNGATO [Suspect]
     Indication: BACK PAIN
     Dosage: 100 MG TABLET
     Route: 048
     Dates: start: 20130306, end: 20130313
  2. KOLIBRI [Concomitant]
     Indication: BACK PAIN
     Route: 048
     Dates: start: 20070101, end: 20130313

REACTIONS (1)
  - Adiposis dolorosa [Not Recovered/Not Resolved]
